FAERS Safety Report 7410791-3 (Version None)
Quarter: 2011Q2

REPORT INFORMATION
  Report Type: 
  Country: None (occurrence: None)
  Receive Date: 20110413
  Receipt Date: 20110330
  Transmission Date: 20111010
  Serious: Yes (Hospitalization)
  Sender: FDA-Public Use
  Company Number: KR-RANBAXY-2011RR-43446

PATIENT
  Age: 75 Year
  Sex: Male
  Weight: 54 kg

DRUGS (4)
  1. DOXYCYCLINE [Suspect]
     Indication: SCRUB TYPHUS
     Dosage: 100 MG, BID
  2. MARNTIN [Concomitant]
     Dosage: 150 MG, BID
  3. ALMAGATE [Suspect]
     Indication: ABDOMINAL PAIN UPPER
     Dosage: 1.5 G, TID
  4. ALMAGATE [Suspect]
     Indication: NAUSEA

REACTIONS (3)
  - ENCEPHALITIS [None]
  - DRUG INEFFECTIVE [None]
  - DRUG INTERACTION [None]
